FAERS Safety Report 16811323 (Version 2)
Quarter: 2019Q3

REPORT INFORMATION
  Report Type: Spontaneous
  Country: AU (occurrence: AU)
  Receive Date: 20190916
  Receipt Date: 20190925
  Transmission Date: 20191005
  Serious: Yes (Death, Hospitalization)
  Sender: FDA-Public Use
  Company Number: AU-CELGENEUS-AUS-20190809015

PATIENT
  Age: 80 Year
  Sex: Male

DRUGS (23)
  1. ROSUVASTATIN. [Concomitant]
     Active Substance: ROSUVASTATIN
     Indication: BLOOD CHOLESTEROL INCREASED
     Dosage: 20 MILLIGRAM
     Route: 048
     Dates: start: 1998, end: 20190831
  2. PARACETAMOL [Concomitant]
     Active Substance: ACETAMINOPHEN
     Route: 048
     Dates: start: 2019, end: 20190831
  3. VENETOCLAX. [Concomitant]
     Active Substance: VENETOCLAX
     Indication: MYELODYSPLASTIC SYNDROME
     Dosage: 100 MILLIGRAM
     Route: 048
     Dates: start: 20180813, end: 20190816
  4. AMLODIPINE [Concomitant]
     Active Substance: AMLODIPINE BESYLATE
     Indication: ATRIAL FIBRILLATION
     Dosage: 5 MILLIGRAM
     Route: 048
     Dates: start: 2013
  5. SERTRALINE [Concomitant]
     Active Substance: SERTRALINE HYDROCHLORIDE
     Route: 048
     Dates: start: 2019, end: 20190831
  6. METOCLOPRAMIDE. [Concomitant]
     Active Substance: METOCLOPRAMIDE
     Indication: PROPHYLAXIS OF NAUSEA AND VOMITING
     Dosage: 10 MILLIGRAM
     Route: 048
     Dates: start: 20180813, end: 20190831
  7. FENTANYL. [Concomitant]
     Active Substance: FENTANYL
     Indication: ASPIRATION BONE MARROW
     Dosage: 100 MICROGRAM
     Route: 041
     Dates: start: 20180724, end: 20190831
  8. AZACITIDINE. [Suspect]
     Active Substance: AZACITIDINE
     Indication: MYELODYSPLASTIC SYNDROME
     Dosage: 75 MILLIGRAM/SQ. METER
     Route: 058
     Dates: start: 20180813
  9. TEMAZEPAM. [Concomitant]
     Active Substance: TEMAZEPAM
     Indication: INSOMNIA
     Dosage: 10 MILLIGRAM
     Route: 048
     Dates: start: 20190218, end: 20190831
  10. PARACETAMOL [Concomitant]
     Active Substance: ACETAMINOPHEN
     Indication: MUSCULOSKELETAL STIFFNESS
     Dosage: 16 GRAM
     Route: 048
     Dates: start: 20190213, end: 20190423
  11. COLOXYL AND SENNA [Concomitant]
     Indication: CONSTIPATION PROPHYLAXIS
     Dosage: 2 TABLET
     Route: 048
     Dates: start: 20190216, end: 20190831
  12. PANTOPRAZOLE [Concomitant]
     Active Substance: PANTOPRAZOLE
     Indication: PROPHYLAXIS
     Dosage: 40 MILLIGRAM
     Route: 048
     Dates: start: 2013, end: 20190831
  13. CYCLIZINE [Concomitant]
     Active Substance: CYCLIZINE
     Indication: PROPHYLAXIS OF NAUSEA AND VOMITING
     Dosage: 25-50 MG (AS REQUIRED)
     Route: 048
     Dates: start: 20180813, end: 20190831
  14. MIDAZOLAM [Concomitant]
     Active Substance: MIDAZOLAM HYDROCHLORIDE
     Indication: ASPIRATION BONE MARROW
     Dosage: 5 MILLIGRAM
     Route: 041
     Dates: start: 20180724, end: 20190831
  15. MOXIFLOXACIN. [Concomitant]
     Active Substance: MOXIFLOXACIN
     Indication: PROPHYLAXIS
     Dosage: 400 MILLIGRAM
     Route: 048
     Dates: start: 20180813
  16. LIGNOCAINE [Concomitant]
     Active Substance: LIDOCAINE HYDROCHLORIDE
     Indication: ASPIRATION BONE MARROW
     Dosage: 10 MILLILITER
     Route: 058
     Dates: start: 20180724, end: 20190831
  17. LACTULOSE. [Concomitant]
     Active Substance: LACTULOSE
     Indication: CONSTIPATION PROPHYLAXIS
     Dosage: 30 UNIT
     Route: 048
     Dates: start: 20180217
  18. SERTRALINE [Concomitant]
     Active Substance: SERTRALINE HYDROCHLORIDE
     Dosage: 100 MILLIGRAM
     Route: 048
     Dates: start: 20190213, end: 20190424
  19. PARACETAMOL [Concomitant]
     Active Substance: ACETAMINOPHEN
     Indication: FEBRILE NEUTROPENIA
     Dosage: 1 GRAM
     Route: 048
     Dates: start: 20180814
  20. LACTULOSE. [Concomitant]
     Active Substance: LACTULOSE
     Dosage: 20 MILLILITER
     Route: 048
     Dates: start: 20190220, end: 20190831
  21. SERTRALINE [Concomitant]
     Active Substance: SERTRALINE HYDROCHLORIDE
     Indication: ANTIDEPRESSANT THERAPY
     Dosage: 100 MILLIGRAM
     Route: 048
     Dates: start: 2005
  22. TRANEXAMIC ACID. [Concomitant]
     Active Substance: TRANEXAMIC ACID
     Indication: MYELODYSPLASTIC SYNDROME
     Dosage: 9 GRAM
     Route: 048
     Dates: start: 20180710, end: 20190831
  23. KEFLEX [Concomitant]
     Active Substance: CEPHALEXIN
     Indication: URINARY TRACT INFECTION
     Dosage: 1500 MILLIGRAM
     Route: 048
     Dates: start: 20190702

REACTIONS (2)
  - Cardiac failure [Unknown]
  - Sepsis [Fatal]

NARRATIVE: CASE EVENT DATE: 20190816
